FAERS Safety Report 9993556 (Version 1)
Quarter: 2014Q1

REPORT INFORMATION
  Report Type: Spontaneous
  Country: US (occurrence: US)
  Receive Date: 20140310
  Receipt Date: 20140310
  Transmission Date: 20141002
  Serious: Yes (Hospitalization)
  Sender: FDA-Public Use
  Company Number: US-MYLANLABS-2014S1004534

PATIENT
  Age: 51 Year
  Sex: Male
  Weight: 85 kg

DRUGS (7)
  1. LISINOPRIL [Suspect]
     Indication: OVERDOSE
     Dosage: DF = 10MG TABLET (3.18 MG/KG/BODYWEIGHT)
     Route: 048
  2. LISINOPRIL [Suspect]
     Indication: HYPERTENSION
     Dosage: DF = 10MG TABLET (3.18 MG/KG/BODYWEIGHT)
     Route: 048
  3. LISINOPRIL [Suspect]
     Indication: OVERDOSE
     Route: 065
  4. LISINOPRIL [Suspect]
     Indication: HYPERTENSION
     Route: 065
  5. HYDROCODONE [Concomitant]
     Dosage: 5MG
     Route: 065
  6. PARACETAMOL [Concomitant]
     Dosage: 325MG
     Route: 065
  7. ALPRAZOLAM [Concomitant]
     Dosage: 0.5MG
     Route: 065

REACTIONS (11)
  - Overdose [Recovering/Resolving]
  - Renal failure acute [Recovering/Resolving]
  - Metabolic acidosis [Recovered/Resolved]
  - Rhabdomyolysis [Recovering/Resolving]
  - Confusional state [Recovering/Resolving]
  - Hyperkalaemia [Recovered/Resolved]
  - Incoherent [Recovering/Resolving]
  - Depressed level of consciousness [Recovering/Resolving]
  - Dysarthria [Recovering/Resolving]
  - Hallucination, visual [Recovering/Resolving]
  - Toxicity to various agents [Recovering/Resolving]
